FAERS Safety Report 24828545 (Version 1)
Quarter: 2025Q1

REPORT INFORMATION
  Report Type: Spontaneous
  Country: JP (occurrence: JP)
  Receive Date: 20250110
  Receipt Date: 20250110
  Transmission Date: 20250409
  Serious: Yes (Hospitalization, Other)
  Sender: GLAXOSMITHKLINE
  Company Number: JP-GSK-JP2025JPN001205

PATIENT

DRUGS (1)
  1. VALTREX [Suspect]
     Active Substance: VALACYCLOVIR HYDROCHLORIDE
     Indication: Herpes zoster

REACTIONS (8)
  - Toxic encephalopathy [Unknown]
  - Altered state of consciousness [Unknown]
  - Gaze palsy [Unknown]
  - Acute kidney injury [Unknown]
  - Nephropathy toxic [Unknown]
  - Azotaemia [Unknown]
  - Tremor [Unknown]
  - Cerebrovascular disorder [Unknown]
